FAERS Safety Report 26204276 (Version 1)
Quarter: 2025Q4

REPORT INFORMATION
  Report Type: Spontaneous
  Country: US (occurrence: US)
  Receive Date: 20251226
  Receipt Date: 20251226
  Transmission Date: 20260117
  Serious: Yes (Death, Hospitalization)
  Sender: FRESENIUS MEDICAL CARE
  Company Number: US-FMCRTG-FMC-2512-002003

PATIENT
  Age: 85 Year
  Sex: Male
  Weight: 59.5 kg

DRUGS (1)
  1. DELFLEX WITH DEXTROSE 2.5% LOW MAGNESIUM LOW CALCIUM [Suspect]
     Active Substance: CALCIUM CHLORIDE\DEXTROSE\MAGNESIUM CHLORIDE\SODIUM CHLORIDE\SODIUM LACTATE
     Indication: End stage renal disease
     Dosage: TOTAL VOLUME 13.5L, 2L FILL X 5 CYCLES, LAST FILL 1.5L, MIDDAY EXCHANGE 2L FILL
     Route: 033
     Dates: start: 20251105

REACTIONS (3)
  - Cardiac arrest [Fatal]
  - Cachexia [Fatal]
  - Peritonitis bacterial [Fatal]
